FAERS Safety Report 20209281 (Version 2)
Quarter: 2021Q4

REPORT INFORMATION
  Report Type: Spontaneous
  Country: TR (occurrence: TR)
  Receive Date: 20211220
  Receipt Date: 20211231
  Transmission Date: 20220303
  Serious: Yes (Hospitalization, Other)
  Sender: FDA-Public Use
  Company Number: TR-GLAXOSMITHKLINE-TR2021GSK254495

PATIENT
  Age: 21 Year
  Sex: Female

DRUGS (2)
  1. PAXIL [Suspect]
     Active Substance: PAROXETINE HYDROCHLORIDE
     Indication: Anxiety
     Dosage: 20 MILLIGRAM, QD, ONE AND HALF MONTHS
     Route: 048
     Dates: start: 201609, end: 201610
  2. PAXIL [Suspect]
     Active Substance: PAROXETINE HYDROCHLORIDE
     Indication: Depression
     Dosage: 15 OR 16 20-MG TABLETS (300-320 MG)
     Route: 048
     Dates: start: 201609, end: 201610

REACTIONS (3)
  - Suicide attempt [Unknown]
  - Overdose [Unknown]
  - Exposure during pregnancy [Unknown]

NARRATIVE: CASE EVENT DATE: 20161001
